FAERS Safety Report 6825480-3 (Version None)
Quarter: 2010Q3

REPORT INFORMATION
  Report Type: 
  Country: None (occurrence: None)
  Receive Date: 20100708
  Receipt Date: 20100223
  Transmission Date: 20110219
  Serious: No
  Sender: FDA-Public Use
  Company Number: US-PFIZER INC-2006133198

PATIENT
  Sex: Male
  Weight: 95.25 kg

DRUGS (14)
  1. CHANTIX [Suspect]
     Indication: SMOKING CESSATION THERAPY
     Dates: start: 20060101
  2. BENADRYL [Suspect]
     Indication: INSOMNIA
  3. COREG [Concomitant]
  4. ACTOS [Concomitant]
  5. LISINOPRIL [Concomitant]
  6. LIPITOR [Concomitant]
  7. WARFARIN SODIUM [Concomitant]
  8. METFORMIN HCL [Concomitant]
  9. NIASPAN [Concomitant]
  10. TRICOR [Concomitant]
  11. WELLBUTRIN [Concomitant]
  12. DIGITEK [Concomitant]
  13. AMBIEN [Concomitant]
  14. VITAMINS [Concomitant]

REACTIONS (1)
  - INSOMNIA [None]
